FAERS Safety Report 9730797 (Version 1)
Quarter: 2013Q4

REPORT INFORMATION
  Report Type: Spontaneous
  Country: CA (occurrence: CA)
  Receive Date: 20131205
  Receipt Date: 20131205
  Transmission Date: 20140711
  Serious: Yes (Disabling)
  Sender: FDA-Public Use
  Company Number: CA-ROCHE-1312104

PATIENT
  Age: 42 Year
  Sex: Male
  Weight: 77 kg

DRUGS (3)
  1. NAPROXEN [Suspect]
     Indication: PRODUCT USED FOR UNKNOWN INDICATION
     Route: 065
  2. CELEBREX [Suspect]
     Indication: PRODUCT USED FOR UNKNOWN INDICATION
     Route: 065
  3. REMICADE [Suspect]
     Indication: PRODUCT USED FOR UNKNOWN INDICATION
     Route: 042

REACTIONS (6)
  - Arthralgia [Unknown]
  - Back injury [Unknown]
  - Back pain [Unknown]
  - Disability [Unknown]
  - Joint swelling [Unknown]
  - Post-traumatic neck syndrome [Unknown]
